FAERS Safety Report 8979015 (Version 1)
Quarter: 2012Q4

REPORT INFORMATION
  Report Type: 
  Country: FR (occurrence: FR)
  Receive Date: 20121220
  Receipt Date: 20121220
  Transmission Date: 20130627
  Serious: Yes (Hospitalization)
  Sender: FDA-Public Use
  Company Number: FR-MYLANLABS-2012S1025460

PATIENT
  Age: 20 Year
  Sex: Male

DRUGS (9)
  1. OMEPRAZOLE [Suspect]
     Route: 065
     Dates: start: 2006, end: 20100730
  2. ESOMEPRAZOLE [Suspect]
     Indication: GASTROOESOPHAGEAL REFLUX DISEASE
     Dosage: 40mg/day
     Route: 065
     Dates: start: 20100808, end: 20100824
  3. MEROPENEM [Concomitant]
     Route: 065
     Dates: start: 20100705, end: 20100719
  4. TOBRAMYCIN [Concomitant]
     Route: 065
     Dates: start: 20100705, end: 20100719
  5. TEICOPLANIN [Concomitant]
     Route: 065
     Dates: start: 20100705, end: 20100719
  6. RANITIDINE [Concomitant]
     Route: 065
     Dates: start: 20100730
  7. MEROPENEM [Concomitant]
     Route: 065
     Dates: end: 20100814
  8. TEICOPLANIN [Concomitant]
     Route: 065
     Dates: end: 20100814
  9. COTRIMOXAZOLE [Concomitant]
     Route: 065
     Dates: end: 20100814

REACTIONS (3)
  - Agranulocytosis [Recovered/Resolved]
  - Septic shock [Recovered/Resolved]
  - Agranulocytosis [Recovering/Resolving]
